FAERS Safety Report 18592944 (Version 1)
Quarter: 2020Q4

REPORT INFORMATION
  Report Type: Spontaneous
  Country: LT (occurrence: LT)
  Receive Date: 20201209
  Receipt Date: 20201209
  Transmission Date: 20210114
  Serious: Yes (Hospitalization)
  Sender: FDA-Public Use
  Company Number: LT-JNJFOC-20201209898

PATIENT
  Age: 62 Year
  Sex: Female
  Weight: 85 kg

DRUGS (5)
  1. REMICADE [Suspect]
     Active Substance: INFLIXIMAB
     Indication: RHEUMATOID ARTHRITIS
     Dosage: 300 MG
     Route: 042
     Dates: start: 20040408, end: 20200108
  2. TERIPARATIDE [Concomitant]
     Active Substance: TERIPARATIDE
     Indication: OSTEOPOROSIS POSTMENOPAUSAL
     Dosage: 20 MCG
     Route: 023
     Dates: start: 20200108
  3. METHYLPREDNISOLONE. [Concomitant]
     Active Substance: METHYLPREDNISOLONE
     Indication: RHEUMATOID ARTHRITIS
     Dosage: 4 MG
     Route: 048
     Dates: start: 19981201
  4. LORNOXICAM [Concomitant]
     Active Substance: LORNOXICAM
     Indication: RHEUMATOID ARTHRITIS
     Dosage: 16 MG
     Route: 048
     Dates: start: 20170215
  5. METHOTREXATE. [Concomitant]
     Active Substance: METHOTREXATE
     Indication: RHEUMATOID ARTHRITIS
     Dates: start: 20121102, end: 20200313

REACTIONS (1)
  - Pulmonary tuberculosis [Recovering/Resolving]

NARRATIVE: CASE EVENT DATE: 20200313
